FAERS Safety Report 11669980 (Version 1)
Quarter: 2015Q4

REPORT INFORMATION
  Report Type: Spontaneous
  Country: US (occurrence: US)
  Receive Date: 20151027
  Receipt Date: 20151027
  Transmission Date: 20160304
  Serious: No
  Sender: FDA-Public Use
  Company Number: US-ELI_LILLY_AND_COMPANY-US201005002915

PATIENT
  Sex: Female

DRUGS (4)
  1. VITAMIN D [Concomitant]
     Active Substance: CHOLECALCIFEROL
  2. FORTEO [Suspect]
     Active Substance: TERIPARATIDE
     Indication: OSTEOPOROSIS
     Dosage: 20 UG, DAILY (1/D)
     Dates: start: 201001
  3. VITAMIN K2 [Concomitant]
     Active Substance: MENAQUINONE 6
  4. CALCIUM [Concomitant]
     Active Substance: CALCIUM

REACTIONS (6)
  - Drug dose omission [Recovered/Resolved]
  - Mobility decreased [Unknown]
  - Fatigue [Unknown]
  - Back pain [Unknown]
  - Muscular weakness [Unknown]
  - Arthralgia [Unknown]

NARRATIVE: CASE EVENT DATE: 2010
